FAERS Safety Report 16934942 (Version 1)
Quarter: 2019Q4

REPORT INFORMATION
  Report Type: Spontaneous
  Country: NL (occurrence: ES)
  Receive Date: 20191018
  Receipt Date: 20191018
  Transmission Date: 20200122
  Serious: Yes (Other)
  Sender: FDA-Public Use
  Company Number: ES-FRESENIUS KABI-FK201911229

PATIENT
  Age: 28 Year
  Sex: Male

DRUGS (5)
  1. CEFOTAXIME SODIUM [Suspect]
     Active Substance: CEFOTAXIME SODIUM
     Indication: BRONCHITIS
     Dosage: | DOSE UNIT FREQUENCY: 6 G-GRAMS || DOSE PER DOSE: 2 G-GRAMS || NUMBER OF SHOTS PER UNIT OF FREQUENC
     Route: 042
     Dates: start: 20100319
  2. CITICOLINE SODIUM [Suspect]
     Active Substance: CITICOLINE SODIUM
     Indication: PRODUCT USED FOR UNKNOWN INDICATION
     Dosage: || DOSE UNIT FREQUENCY: 4 G-GRAMS || DOSE PER DOSE: 1 G-GRAMS || NUMBER OF SHOTS PER UNIT OF FREQUEN
     Route: 042
     Dates: start: 20100317, end: 20100321
  3. PHENYTOIN SODIUM. [Suspect]
     Active Substance: PHENYTOIN SODIUM
     Indication: SEIZURE
     Dosage: || DOSE UNIT FREQUENCY: 1 G-GRAMS || DOSE PER DOSE: 0.25 G-GRAMS || NUMBER OF SHOTS PER UNIT OF FREQ
     Route: 042
     Dates: start: 20100316, end: 20100319
  4. PROPOFOL (MANUFACTURER UNKNOWN) [Suspect]
     Active Substance: PROPOFOL
     Indication: SEDATIVE THERAPY
     Route: 042
     Dates: start: 20100316, end: 20100322
  5. VANCOMYCIN HYDROCHLORIDE. [Suspect]
     Active Substance: VANCOMYCIN HYDROCHLORIDE
     Indication: BRONCHITIS
     Dosage: || DOSE UNIT FREQUENCY: 2 G-GRAMS || DOSE PER DOSE: 1 G-GRAMS || NUMBER OF SHOTS PER UNIT OF FREQUEN
     Route: 042
     Dates: start: 20100319

REACTIONS (1)
  - Hepatitis [Recovered/Resolved]

NARRATIVE: CASE EVENT DATE: 20100320
